FAERS Safety Report 9303188 (Version 1)
Quarter: 2013Q2

REPORT INFORMATION
  Report Type: Spontaneous
  Country: BR (occurrence: BR)
  Receive Date: 20130522
  Receipt Date: 20130522
  Transmission Date: 20140414
  Serious: Yes (Other)
  Sender: FDA-Public Use
  Company Number: BR-AMGEN-BRASP2012033290

PATIENT
  Age: 52 Year
  Sex: Female
  Weight: 110 kg

DRUGS (6)
  1. ENBREL [Suspect]
     Indication: PSORIATIC ARTHROPATHY
     Dosage: 25 MG, 2X/WEEK
     Route: 058
     Dates: start: 20111007
  2. ENBREL [Suspect]
     Indication: PSORIASIS
     Dosage: UNK
  3. METHYLDOPA [Concomitant]
     Indication: HYPERTENSION
     Dosage: UNK
  4. CLORANA [Concomitant]
     Dosage: UNK
  5. NAPRIX [Concomitant]
     Indication: HYPERTENSION
     Dosage: 1 TABLET OF 5 MG, 2X/DAY
  6. LOSARTAN [Concomitant]
     Indication: HYPERTENSION
     Dosage: UNK

REACTIONS (3)
  - Diabetes mellitus [Unknown]
  - Psoriasis [Not Recovered/Not Resolved]
  - Drug ineffective [Unknown]
